FAERS Safety Report 9559275 (Version 2)
Quarter: 2013Q4

REPORT INFORMATION
  Report Type: Spontaneous
  Country: BE (occurrence: BE)
  Receive Date: 20130927
  Receipt Date: 20131008
  Transmission Date: 20140711
  Serious: Yes (Other)
  Sender: FDA-Public Use
  Company Number: BE-AMGEN-BELSP2013066728

PATIENT
  Age: 75 Year
  Sex: Female

DRUGS (1)
  1. PROLIA [Suspect]
     Indication: OSTEOPOROSIS
     Dosage: UNK
     Route: 065

REACTIONS (6)
  - Fractured sacrum [Unknown]
  - Pelvic fracture [Unknown]
  - Osteoporotic fracture [Unknown]
  - Arthralgia [Unknown]
  - Back pain [Unknown]
  - Bone marrow oedema [Unknown]
